FAERS Safety Report 13762503 (Version 1)
Quarter: 2017Q3

REPORT INFORMATION
  Report Type: Spontaneous
  Country: US (occurrence: US)
  Receive Date: 20170717
  Receipt Date: 20170717
  Transmission Date: 20171127
  Serious: Yes (Other)
  Sender: FDA-Public Use
  Company Number: None

PATIENT
  Age: 59 Year
  Sex: Female
  Weight: 51.75 kg

DRUGS (2)
  1. CALCIUM WITH VITAMIN D [Concomitant]
     Active Substance: CALCIUM\VITAMIN D
  2. ALENDRONATE SODIUM TABLETS, USP [Suspect]
     Active Substance: ALENDRONATE SODIUM
     Indication: OSTEOPENIA
     Dosage: ?          OTHER STRENGTH:MG;QUANTITY:1 TABLET(S);OTHER FREQUENCY:ONCE WEEKLY;?
     Route: 048
     Dates: start: 20170703, end: 20170710

REACTIONS (3)
  - Musculoskeletal pain [None]
  - Impaired work ability [None]
  - Arthralgia [None]

NARRATIVE: CASE EVENT DATE: 20170711
